FAERS Safety Report 10459807 (Version 1)
Quarter: 2014Q3

REPORT INFORMATION
  Report Type: Spontaneous
  Country: US (occurrence: None)
  Receive Date: 20140915
  Receipt Date: 20140915
  Transmission Date: 20150326
  Serious: Yes (Other)
  Sender: FDA-Public Use
  Company Number: 001800189A

PATIENT
  Age: 13 Year
  Sex: Female

DRUGS (1)
  1. PROACTIV RENEWING CLEANSER [Suspect]
     Active Substance: BENZOYL PEROXIDE
     Indication: ACNE
     Dosage: ONCE DAILY DERMAL
     Dates: start: 20140320, end: 20140518

REACTIONS (5)
  - Urticaria [None]
  - Swelling [None]
  - Hypersensitivity [None]
  - Erythema [None]
  - Skin test positive [None]

NARRATIVE: CASE EVENT DATE: 20140519
